FAERS Safety Report 6645307-2 (Version None)
Quarter: 2010Q1

REPORT INFORMATION
  Report Type: 
  Country: None (occurrence: None)
  Receive Date: 20100322
  Receipt Date: 20090622
  Transmission Date: 20100710
  Serious: Yes (Hospitalization)
  Sender: FDA-Public Use
  Company Number: TR-SANOFI-AVENTIS-A01200906645

PATIENT
  Age: 39 Year
  Sex: Female

DRUGS (3)
  1. CHLOROQUINE PHOSPHATE [Suspect]
     Indication: RHEUMATOID ARTHRITIS
     Route: 065
  2. CHLOROQUINE PHOSPHATE [Interacting]
     Route: 065
  3. SULFASALAZINE [Interacting]
     Indication: RHEUMATOID ARTHRITIS
     Route: 065

REACTIONS (9)
  - ANXIETY [None]
  - BIPOLAR I DISORDER [None]
  - DELUSION OF GRANDEUR [None]
  - DELUSIONAL DISORDER, EROTOMANIC TYPE [None]
  - DRUG INTERACTION [None]
  - HALLUCINATION, AUDITORY [None]
  - INSOMNIA [None]
  - PERSECUTORY DELUSION [None]
  - SUICIDAL IDEATION [None]
